FAERS Safety Report 6635617-7 (Version None)
Quarter: 2010Q1

REPORT INFORMATION
  Report Type: 
  Country: None (occurrence: None)
  Receive Date: 20100312
  Receipt Date: 20100312
  Transmission Date: 20100710
  Serious: No
  Sender: FDA-Public Use
  Company Number: None

PATIENT
  Age: 37 Year
  Sex: Female
  Weight: 59.8748 kg

DRUGS (1)
  1. CELEXA [Suspect]
     Indication: ANXIETY
     Dosage: 20MG 1 QD PO
     Route: 048
     Dates: start: 20100119, end: 20100301

REACTIONS (3)
  - ABNORMAL DREAMS [None]
  - MENTAL DISORDER [None]
  - MIDDLE INSOMNIA [None]
